FAERS Safety Report 17469802 (Version 5)
Quarter: 2020Q2

REPORT INFORMATION
  Report Type: Report from Study
  Country: CO (occurrence: CO)
  Receive Date: 20200227
  Receipt Date: 20200409
  Transmission Date: 20200713
  Serious: Yes (Hospitalization, Other)
  Sender: FDA-Public Use
  Company Number: NVSC2020CO052166

PATIENT
  Age: 64 Year
  Sex: Male
  Weight: 97 kg

DRUGS (3)
  1. LATANOPROST. [Concomitant]
     Active Substance: LATANOPROST
     Indication: EYE DISORDER
     Dosage: 1 IN EACH EYE, QD
     Route: 047
  2. LATANOPROST. [Concomitant]
     Active Substance: LATANOPROST
     Indication: GLAUCOMA
  3. COSENTYX [Suspect]
     Active Substance: SECUKINUMAB
     Indication: PSORIASIS
     Dosage: 300 MG, QMO
     Route: 058
     Dates: start: 20190903

REACTIONS (10)
  - Inflammation [Not Recovered/Not Resolved]
  - Penile rash [Not Recovered/Not Resolved]
  - Erythema [Unknown]
  - Cellulitis [Recovered/Resolved]
  - Arthralgia [Not Recovered/Not Resolved]
  - Glaucoma [Unknown]
  - Rash [Not Recovered/Not Resolved]
  - Pain in extremity [Recovered/Resolved]
  - Deafness unilateral [Not Recovered/Not Resolved]
  - Visual impairment [Unknown]

NARRATIVE: CASE EVENT DATE: 202002
